FAERS Safety Report 18222843 (Version 4)
Quarter: 2024Q3

REPORT INFORMATION
  Report Type: Spontaneous
  Country: US (occurrence: US)
  Receive Date: 20200902
  Receipt Date: 20240805
  Transmission Date: 20241017
  Serious: Yes (Other)
  Sender: BAYER
  Company Number: US-BAYER-2020-184408

PATIENT
  Age: 18 Year
  Sex: Female
  Weight: 56.689 kg

DRUGS (2)
  1. KYLEENA [Suspect]
     Active Substance: LEVONORGESTREL
     Indication: Contraception
     Dosage: 17.5?G/DAY
     Route: 015
     Dates: start: 20191111, end: 20200619
  2. ZOLOFT [Concomitant]
     Active Substance: SERTRALINE HYDROCHLORIDE
     Dosage: UNK
     Dates: start: 20191111

REACTIONS (11)
  - Uterine perforation [Recovered/Resolved]
  - Device breakage [None]
  - Procedural haemorrhage [None]
  - Device deployment issue [None]
  - Abdominal pain lower [None]
  - Pelvic pain [None]
  - Ovarian cyst [None]
  - Discomfort [None]
  - Abdominal pain lower [None]
  - Complication of device removal [None]
  - Procedural pain [None]

NARRATIVE: CASE EVENT DATE: 20200518
